FAERS Safety Report 16149980 (Version 1)
Quarter: 2019Q2

REPORT INFORMATION
  Report Type: Spontaneous
  Country: ZA (occurrence: ZA)
  Receive Date: 20190402
  Receipt Date: 20190402
  Transmission Date: 20190711
  Serious: Yes (Hospitalization)
  Sender: FDA-Public Use
  Company Number: ZA-NOVOPROD-651630

PATIENT
  Sex: Female

DRUGS (8)
  1. LANCAP [Concomitant]
     Active Substance: LANSOPRAZOLE
     Dosage: UNK
  2. SINOPREN [Concomitant]
     Active Substance: LISINOPRIL
     Dosage: UNK
  3. CINNARIZINE [Concomitant]
     Active Substance: CINNARIZINE
     Dosage: UNK
  4. NIFEDIPINE. [Concomitant]
     Active Substance: NIFEDIPINE
     Dosage: UNK
  5. FLEXOCAM [Concomitant]
     Active Substance: MELOXICAM
  6. METHOTREXATE. [Concomitant]
     Active Substance: METHOTREXATE
     Dosage: UNK
  7. ESTROFEM (ESTRADIOL HEMIHYDRATE) [Suspect]
     Active Substance: ESTRADIOL HEMIHYDRATE
     Indication: HORMONE REPLACEMENT THERAPY
     Dosage: 1 MG
     Route: 048
  8. ATENOLOL. [Concomitant]
     Active Substance: ATENOLOL
     Dosage: UNK

REACTIONS (1)
  - Pulmonary embolism [Recovering/Resolving]
